FAERS Safety Report 4586999-1 (Version None)
Quarter: 2005Q1

REPORT INFORMATION
  Report Type: 
  Country: None (occurrence: None)
  Receive Date: 20050218
  Receipt Date: 20041221
  Transmission Date: 20050727
  Serious: Yes (Other)
  Sender: FDA-Public Use
  Company Number: US-MERCK-0412USA02635

PATIENT
  Age: 74 Year
  Sex: Male

DRUGS (3)
  1. VIOXX [Suspect]
     Indication: OSTEOARTHRITIS
     Route: 048
     Dates: start: 19990101, end: 20010311
  2. VIOXX [Suspect]
     Route: 048
     Dates: start: 20010312, end: 20020201
  3. MICRONASE [Concomitant]
     Route: 065

REACTIONS (10)
  - ANAEMIA [None]
  - DIVERTICULUM INTESTINAL [None]
  - DUODENITIS [None]
  - EXTRASYSTOLES [None]
  - FAECAL OCCULT BLOOD POSITIVE [None]
  - GASTRIC ULCER HAEMORRHAGE [None]
  - GASTRITIS [None]
  - HAEMORRHOIDS [None]
  - HIATUS HERNIA [None]
  - RECTAL HAEMORRHAGE [None]
